FAERS Safety Report 9649168 (Version 2)
Quarter: 2013Q4

REPORT INFORMATION
  Report Type: Spontaneous
  Country: US (occurrence: US)
  Receive Date: 20131028
  Receipt Date: 20131028
  Transmission Date: 20140711
  Serious: No
  Sender: FDA-Public Use
  Company Number: -SAAVPROD-POMP-1002732

PATIENT
  Age: 25 Year
  Sex: Male

DRUGS (4)
  1. ALGLUCOSIDASE ALFA [Suspect]
     Indication: GLYCOGEN STORAGE DISEASE TYPE II
     Dosage: 1200 MG, Q2W
     Route: 042
     Dates: start: 20130112
  2. ALGLUCOSIDASE ALFA [Suspect]
     Indication: GLYCOGEN STORAGE DISEASE TYPE II
     Dosage: 1150 MG, UNK
     Route: 042
     Dates: start: 20130112, end: 20130112
  3. ALGLUCOSIDASE ALFA [Suspect]
     Indication: GLYCOGEN STORAGE DISEASE TYPE II
     Dosage: 1400 MG, UNK
     Route: 042
     Dates: start: 20130525
  4. LIDOCAINE [Concomitant]
     Indication: ANAESTHESIA
     Dosage: THIN LAYER TO SKIN
     Route: 061

REACTIONS (2)
  - Weight increased [Unknown]
  - Underdose [Recovered/Resolved]
